FAERS Safety Report 11210859 (Version 2)
Quarter: 2015Q3

REPORT INFORMATION
  Report Type: Report from Study
  Country: CA (occurrence: CA)
  Receive Date: 20150622
  Receipt Date: 20150716
  Transmission Date: 20151125
  Serious: Yes (Other)
  Sender: FDA-Public Use
  Company Number: PHHY2015CA070181

PATIENT
  Age: 43 Year
  Sex: Female

DRUGS (9)
  1. ALVESCO [Concomitant]
     Active Substance: CICLESONIDE
     Indication: PRODUCT USED FOR UNKNOWN INDICATION
     Route: 065
  2. NEORAL [Suspect]
     Active Substance: CYCLOSPORINE
     Indication: ECZEMA
     Dosage: 200 MG, BID
     Route: 048
     Dates: start: 2014
  3. ATARAX [Concomitant]
     Active Substance: HYDROXYZINE\HYDROXYZINE HYDROCHLORIDE
     Indication: PRODUCT USED FOR UNKNOWN INDICATION
     Route: 065
  4. NEORAL [Suspect]
     Active Substance: CYCLOSPORINE
     Indication: PSORIASIS
     Dosage: 150 MG, BID
     Route: 048
     Dates: start: 2014
  5. ADVAIR HFA [Concomitant]
     Active Substance: FLUTICASONE PROPIONATE\SALMETEROL XINAFOATE
     Indication: PRODUCT USED FOR UNKNOWN INDICATION
     Route: 065
  6. CETRIZINE [Concomitant]
     Active Substance: CETIRIZINE HYDROCHLORIDE
     Indication: PRODUCT USED FOR UNKNOWN INDICATION
     Route: 065
  7. CORTISONE [Concomitant]
     Active Substance: CORTISONE\HYDROCORTISONE
     Indication: PRODUCT USED FOR UNKNOWN INDICATION
     Route: 061
  8. NEORAL [Suspect]
     Active Substance: CYCLOSPORINE
     Dosage: 300 MG, QD
     Route: 048
     Dates: start: 2014
  9. VENTOLINE [Concomitant]
     Active Substance: ALBUTEROL
     Indication: PRODUCT USED FOR UNKNOWN INDICATION
     Route: 065

REACTIONS (19)
  - Sinusitis [Unknown]
  - Rales [Unknown]
  - Blood immunoglobulin E increased [Unknown]
  - Confusional state [Unknown]
  - Vomiting [Unknown]
  - Diarrhoea [Unknown]
  - Stress [Unknown]
  - Overdose [Unknown]
  - Malaise [Unknown]
  - Platelet count increased [Unknown]
  - Neutrophil count increased [Unknown]
  - Eczema [Unknown]
  - Bronchitis [Unknown]
  - White blood cell count increased [Unknown]
  - Asthma [Unknown]
  - Cough [Unknown]
  - Wheezing [Unknown]
  - Drug ineffective [Unknown]
  - Underdose [Unknown]

NARRATIVE: CASE EVENT DATE: 201407
